FAERS Safety Report 4306669-4 (Version None)
Quarter: 2004Q1

REPORT INFORMATION
  Report Type: 
  Country: None (occurrence: None)
  Receive Date: 20040225
  Receipt Date: 20031021
  Transmission Date: 20041129
  Serious: No
  Sender: FDA-Public Use
  Company Number: US-BRISTOL-MYERS SQUIBB COMPANY-12439527

PATIENT
  Sex: Female

DRUGS (1)
  1. EXCEDRIN [Suspect]
     Indication: BACK PAIN
     Dates: start: 19810101

REACTIONS (2)
  - GASTRIC DISORDER [None]
  - ULCER [None]
